FAERS Safety Report 7673733-1 (Version None)
Quarter: 2011Q3

REPORT INFORMATION
  Report Type: 
  Country: None (occurrence: None)
  Receive Date: 20110810
  Receipt Date: 20110804
  Transmission Date: 20111222
  Serious: Yes (Other)
  Sender: FDA-Public Use
  Company Number: US-GENZYME-CERZ-1002155

PATIENT
  Sex: Male
  Weight: 78 kg

DRUGS (3)
  1. CEREZYME [Suspect]
     Indication: GAUCHER'S DISEASE
     Dosage: 46 U/KG, Q2W
     Route: 042
  2. CEREZYME [Suspect]
     Dosage: 33 U/KG, Q4W
     Route: 042
     Dates: start: 19910101
  3. CEREZYME [Suspect]
     Dosage: 41 U/KG, Q2W
     Route: 042

REACTIONS (1)
  - LUNG NEOPLASM MALIGNANT [None]
